FAERS Safety Report 18611705 (Version 1)
Quarter: 2020Q4

REPORT INFORMATION
  Report Type: Spontaneous
  Country: US (occurrence: US)
  Receive Date: 20201214
  Receipt Date: 20201214
  Transmission Date: 20210114
  Serious: No
  Sender: FDA-Public Use
  Company Number: US-R-PHARM US LLC-2019RPM00019

PATIENT

DRUGS (1)
  1. IXEMPRA [Suspect]
     Active Substance: IXABEPILONE

REACTIONS (1)
  - Hypersensitivity [Unknown]
